FAERS Safety Report 8628552 (Version 5)
Quarter: 2017Q4

REPORT INFORMATION
  Report Type: Spontaneous
  Country: US (occurrence: US)
  Receive Date: 20120621
  Receipt Date: 20171004
  Transmission Date: 20180321
  Serious: Yes (Hospitalization, Other)
  Sender: FDA-Public Use
  Company Number: US-ROCHE-1078521

PATIENT
  Age: 55 Year
  Sex: Female

DRUGS (33)
  1. BONIVA [Suspect]
     Active Substance: IBANDRONATE SODIUM
     Indication: OSTEOPENIA
     Route: 048
     Dates: start: 200610, end: 20091214
  2. DOXEPIN [Concomitant]
     Active Substance: DOXEPIN
  3. EFFEXOR XR [Concomitant]
     Active Substance: VENLAFAXINE HYDROCHLORIDE
  4. NASACORT [Concomitant]
     Active Substance: TRIAMCINOLONE ACETONIDE
  5. CLONIDINE. [Concomitant]
     Active Substance: CLONIDINE
  6. TUMS [Concomitant]
     Active Substance: CALCIUM CARBONATE
  7. FORTEO [Concomitant]
     Active Substance: TERIPARATIDE
  8. BEXTRA [Concomitant]
     Active Substance: VALDECOXIB
  9. NEXIUM [Concomitant]
     Active Substance: ESOMEPRAZOLE MAGNESIUM
  10. FOSAMAX [Suspect]
     Active Substance: ALENDRONATE SODIUM
     Indication: OSTEOPOROSIS
     Route: 048
     Dates: start: 20010517, end: 200401
  11. PREDNISONE. [Concomitant]
     Active Substance: PREDNISONE
  12. PULMICORT TURBUHALER [Concomitant]
     Active Substance: BUDESONIDE
  13. ACTONEL [Suspect]
     Active Substance: RISEDRONATE SODIUM
     Indication: OSTEOPOROSIS
     Route: 048
     Dates: start: 200206
  14. OMEGA 3 [Concomitant]
     Active Substance: OMEGA-3 FATTY ACIDS
  15. VITAMIN E [Concomitant]
     Active Substance: .ALPHA.-TOCOPHEROL
  16. SYNTHROID [Concomitant]
     Active Substance: LEVOTHYROXINE SODIUM
  17. AZMACORT [Concomitant]
     Active Substance: TRIAMCINOLONE ACETONIDE
  18. EVISTA [Concomitant]
     Active Substance: RALOXIFENE HYDROCHLORIDE
  19. PREVACID [Concomitant]
     Active Substance: LANSOPRAZOLE
  20. VERAPAMIL [Concomitant]
     Active Substance: VERAPAMIL HYDROCHLORIDE
  21. RHINOCORT AQUA [Concomitant]
     Active Substance: BUDESONIDE
  22. ULTRAM [Concomitant]
     Active Substance: TRAMADOL HYDROCHLORIDE
  23. FOSAMAX [Suspect]
     Active Substance: ALENDRONATE SODIUM
     Indication: OSTEOPENIA
     Route: 048
     Dates: start: 20060215, end: 20060824
  24. DITROPAN XL [Concomitant]
     Active Substance: OXYBUTYNIN CHLORIDE
  25. ECHINACEA [Concomitant]
     Active Substance: ECHINACEA, UNSPECIFIED
  26. BONIVA [Suspect]
     Active Substance: IBANDRONATE SODIUM
     Indication: OSTEOPOROSIS
     Route: 048
     Dates: start: 20060824
  27. ACTONEL [Suspect]
     Active Substance: RISEDRONATE SODIUM
     Indication: OSTEOPENIA
     Route: 048
     Dates: start: 20040127, end: 200602
  28. TESTOSTERONE. [Concomitant]
     Active Substance: TESTOSTERONE
  29. TAMOXIFEN [Concomitant]
     Active Substance: TAMOXIFEN
     Route: 065
     Dates: start: 2000, end: 2005
  30. SEREVENT DISKUS [Concomitant]
     Active Substance: SALMETEROL XINAFOATE
  31. SINGULAIR [Concomitant]
     Active Substance: MONTELUKAST SODIUM
  32. MOBIC [Concomitant]
     Active Substance: MELOXICAM
  33. ASPIRIN. [Concomitant]
     Active Substance: ASPIRIN

REACTIONS (9)
  - Femur fracture [Unknown]
  - Depression [Not Recovered/Not Resolved]
  - Pain in extremity [Unknown]
  - Low turnover osteopathy [Unknown]
  - Anxiety [Unknown]
  - Rib fracture [Unknown]
  - Stress fracture [Not Recovered/Not Resolved]
  - Compression fracture [Unknown]
  - Fall [Unknown]

NARRATIVE: CASE EVENT DATE: 200603
